FAERS Safety Report 8826499 (Version 2)
Quarter: 2012Q4

REPORT INFORMATION
  Report Type: 
  Country: US (occurrence: US)
  Receive Date: 20121005
  Receipt Date: 20121214
  Transmission Date: 20130627
  Serious: Yes (Other)
  Sender: FDA-Public Use
  Company Number: US-PFIZER INC-2012242924

PATIENT
  Sex: Male

DRUGS (1)
  1. DETROL LA [Suspect]
     Dosage: 4 mg, UNK

REACTIONS (6)
  - Visual acuity reduced [Unknown]
  - Renal pain [Recovered/Resolved]
  - Dry eye [Unknown]
  - Headache [Unknown]
  - Constipation [Unknown]
  - Nocturia [Unknown]
